FAERS Safety Report 24247137 (Version 1)
Quarter: 2024Q3

REPORT INFORMATION
  Report Type: Spontaneous
  Country: DE (occurrence: DE)
  Receive Date: 20240826
  Receipt Date: 20240826
  Transmission Date: 20241017
  Serious: Yes (Hospitalization, Other)
  Sender: AUROBINDO
  Company Number: DE-BRISTOL-MYERS SQUIBB COMPANY-2024-071286

PATIENT
  Age: 74 Year
  Sex: Male
  Weight: 70 kg

DRUGS (21)
  1. CARBOPLATIN [Suspect]
     Active Substance: CARBOPLATIN
     Indication: Non-small cell lung cancer
     Dosage: 4 MILLIGRAM(4 AUC - MG/MIN*ML)
     Route: 042
     Dates: start: 20240130
  2. CARBOPLATIN [Suspect]
     Active Substance: CARBOPLATIN
     Dosage: 4 MILLIGRAM(4 AUC - MG/MIN*ML)
     Route: 042
     Dates: start: 20240104
  3. CARBOPLATIN [Suspect]
     Active Substance: CARBOPLATIN
     Dosage: 5 MILLIGRAM(5 AUC - MG/MIN*ML)
     Route: 042
     Dates: start: 20231205
  4. PACLITAXEL [Suspect]
     Active Substance: PACLITAXEL
     Indication: Non-small cell lung cancer
     Dosage: 70 MILLIGRAM/SQ. METER
     Route: 042
     Dates: start: 20240111
  5. PACLITAXEL [Suspect]
     Active Substance: PACLITAXEL
     Dosage: 100 MILLIGRAM/SQ. METER
     Route: 042
     Dates: start: 20231205
  6. PACLITAXEL [Suspect]
     Active Substance: PACLITAXEL
     Dosage: 100 MILLIGRAM/SQ. METER
     Route: 042
     Dates: start: 20231212
  7. PACLITAXEL [Suspect]
     Active Substance: PACLITAXEL
     Dosage: 70 MILLIGRAM/SQ. METER
     Route: 042
     Dates: start: 20240104
  8. PACLITAXEL [Suspect]
     Active Substance: PACLITAXEL
     Dosage: 70 MILLIGRAM/SQ. METER
     Route: 042
     Dates: start: 20240206
  9. PACLITAXEL [Suspect]
     Active Substance: PACLITAXEL
     Dosage: 70 MILLIGRAM/SQ. METER
     Route: 042
     Dates: start: 20240130
  10. NIVOLUMAB [Suspect]
     Active Substance: NIVOLUMAB
     Indication: Non-small cell lung cancer
     Dosage: 360 MILLIGRAM, (21 DAYS)21 DAYS/CYCLE FOR 3 CYCLES
     Route: 042
     Dates: start: 20231205, end: 20240130
  11. ATORVASTATIN [Concomitant]
     Active Substance: ATORVASTATIN
     Indication: Hypercholesterolaemia
     Dosage: 10 MILLIGRAM, ONCE A DAY(DAILY)
     Route: 048
  12. ALLOPURINOL [Concomitant]
     Active Substance: ALLOPURINOL
     Indication: Hyperuricaemia
     Dosage: 100 MILLIGRAM, ONCE A DAY(DAILY)
     Route: 048
  13. CODEINE [Concomitant]
     Active Substance: CODEINE
     Indication: Prophylaxis
     Dosage: UNKP.R.N. (AS NEEDED)
     Route: 048
     Dates: start: 20231201
  14. CHOLECALCIFEROL [Concomitant]
     Active Substance: CHOLECALCIFEROL
     Indication: Vitamin D deficiency
     Dosage: 20000 INTERNATIONAL UNIT, EVERY 2 WEEKS
     Route: 048
  15. DEXAMETHASONE [Concomitant]
     Active Substance: DEXAMETHASONE
     Indication: Prophylaxis
     Dosage: 12 MILLIGRAM(PER CYCLE)
     Route: 048
     Dates: start: 20231205
  16. DEXAMETHASONE [Concomitant]
     Active Substance: DEXAMETHASONE
     Dosage: 8 MILLIGRAM(PER CYCLE)
     Route: 048
     Dates: start: 20231206
  17. GLYCOPYRRONIUM\INDACATEROL [Concomitant]
     Active Substance: GLYCOPYRRONIUM\INDACATEROL
     Indication: Chronic obstructive pulmonary disease
     Dosage: 85 MILLIGRAM, ONCE A DAY(DAILY)
     Route: 048
  18. METOCLOPRAMIDE HYDROCHLORIDE [Concomitant]
     Active Substance: METOCLOPRAMIDE HYDROCHLORIDE
     Indication: Prophylaxis
     Dosage: UNKP.R.N. (AS NEEDED)
     Route: 048
     Dates: start: 20231201, end: 20240103
  19. NETUPITANT\PALONOSETRON [Concomitant]
     Active Substance: NETUPITANT\PALONOSETRON
     Indication: Prophylaxis
     Dosage: 300 MILLIGRAM P.R.N. (AS NEEDED)
     Route: 048
     Dates: start: 20231205
  20. PANTOPRAZOLE SODIUM [Concomitant]
     Active Substance: PANTOPRAZOLE SODIUM
     Indication: Prophylaxis
     Dosage: 40 MILLIGRAM, ONCE A DAY(DAILY)
     Route: 048
     Dates: start: 20231222
  21. RAMIPRIL [Concomitant]
     Active Substance: RAMIPRIL
     Indication: Hypertension
     Dosage: 2.5 MILLIGRAM, TWO TIMES A DAY(DAILY)
     Route: 048

REACTIONS (1)
  - Acute kidney injury [Not Recovered/Not Resolved]

NARRATIVE: CASE EVENT DATE: 20240426
